FAERS Safety Report 15941992 (Version 4)
Quarter: 2019Q4

REPORT INFORMATION
  Report Type: Spontaneous
  Country: US (occurrence: US)
  Receive Date: 20190209
  Receipt Date: 20191118
  Transmission Date: 20200122
  Serious: Yes (Other)
  Sender: FDA-Public Use
  Company Number: US-ASTRAZENECA-2018SF00889

PATIENT
  Age: 24967 Day
  Sex: Male

DRUGS (19)
  1. PRILOSEC [Suspect]
     Active Substance: OMEPRAZOLE MAGNESIUM
     Dosage: GENERIC
     Route: 048
     Dates: start: 1991, end: 2013
  2. DEXILANT [Suspect]
     Active Substance: DEXLANSOPRAZOLE
     Route: 065
     Dates: start: 1991, end: 2013
  3. MYFORTIC [Concomitant]
     Active Substance: MYCOPHENOLATE SODIUM
  4. GAVISCON [Concomitant]
     Active Substance: ALUMINUM HYDROXIDE\MAGNESIUM CARBONATE
  5. NEXIUM 24HR [Suspect]
     Active Substance: ESOMEPRAZOLE MAGNESIUM
     Route: 048
     Dates: start: 1991, end: 2013
  6. ASPIRIN. [Concomitant]
     Active Substance: ASPIRIN
  7. PRILOSEC OTC [Suspect]
     Active Substance: OMEPRAZOLE MAGNESIUM
     Route: 048
     Dates: start: 1991, end: 2013
  8. PRILOSEC OTC [Suspect]
     Active Substance: OMEPRAZOLE MAGNESIUM
     Route: 048
     Dates: start: 1991, end: 2016
  9. ROSUVASTATIN. [Concomitant]
     Active Substance: ROSUVASTATIN
  10. DELTASONE [Concomitant]
     Active Substance: PREDNISONE
     Dosage: TAKE 5 MG BY MOUTH WITH BREAKFAST.
  11. PREVACID 24 HR [Suspect]
     Active Substance: LANSOPRAZOLE
     Route: 065
     Dates: start: 1991, end: 2013
  12. BYSTOLIC [Concomitant]
     Active Substance: NEBIVOLOL HYDROCHLORIDE
     Dosage: TAKE 2.5 MG BY MOUTH DAILY
  13. ZOCOR [Concomitant]
     Active Substance: SIMVASTATIN
     Dosage: TAKE 40 MG BY MOUTH EVERY EVENING
  14. PRILOSEC [Suspect]
     Active Substance: OMEPRAZOLE MAGNESIUM
     Route: 048
     Dates: start: 1991, end: 2013
  15. PRILOSEC [Suspect]
     Active Substance: OMEPRAZOLE MAGNESIUM
     Route: 048
     Dates: start: 20130914
  16. PROTONIX [Suspect]
     Active Substance: PANTOPRAZOLE SODIUM
     Route: 065
     Dates: start: 1991, end: 2013
  17. NEXIUM [Suspect]
     Active Substance: ESOMEPRAZOLE MAGNESIUM
     Route: 048
     Dates: start: 1991, end: 2013
  18. PREVACID [Suspect]
     Active Substance: LANSOPRAZOLE
     Route: 065
     Dates: start: 1991, end: 2013
  19. PREDNISONE. [Concomitant]
     Active Substance: PREDNISONE

REACTIONS (6)
  - Nephrogenic anaemia [Unknown]
  - Renal injury [Unknown]
  - End stage renal disease [Unknown]
  - Renal failure [Unknown]
  - Acute kidney injury [Unknown]
  - Chronic kidney disease [Unknown]

NARRATIVE: CASE EVENT DATE: 20130913
